FAERS Safety Report 18812696 (Version 2)
Quarter: 2021Q1

REPORT INFORMATION
  Report Type: Spontaneous
  Country: RU (occurrence: RU)
  Receive Date: 20210131
  Receipt Date: 20210210
  Transmission Date: 20210419
  Serious: Yes (Hospitalization, Other)
  Sender: FDA-Public Use
  Company Number: RU-AMGEN-RUSSP2021012157

PATIENT
  Sex: Male

DRUGS (1)
  1. XGEVA [Suspect]
     Active Substance: DENOSUMAB
     Indication: ANEURYSMAL BONE CYST
     Dosage: UNK UNK, QMO
     Route: 065
     Dates: start: 201903

REACTIONS (3)
  - Osteosarcoma metastatic [Unknown]
  - Off label use [Unknown]
  - Aneurysmal bone cyst [Unknown]

NARRATIVE: CASE EVENT DATE: 2019
